FAERS Safety Report 25686149 (Version 1)
Quarter: 2025Q3

REPORT INFORMATION
  Report Type: Spontaneous
  Country: US (occurrence: US)
  Receive Date: 20250815
  Receipt Date: 20250815
  Transmission Date: 20251020
  Serious: No
  Sender: MERCK SHARP & DOHME LLC
  Company Number: US-009507513-346172

PATIENT
  Age: 48 Year
  Sex: Female

DRUGS (5)
  1. CANCIDAS [Suspect]
     Active Substance: CASPOFUNGIN ACETATE
     Indication: Candida infection
     Route: 042
  2. CANCIDAS [Suspect]
     Active Substance: CASPOFUNGIN ACETATE
     Indication: Candida infection
     Dosage: DOSE DESCRIPTION : 50 MG, QD?DAILY DOSE : 50 MILLIGRAM
     Route: 042
  3. PRIMAXIN IV [Concomitant]
     Active Substance: CILASTATIN SODIUM\IMIPENEM
     Indication: Pyrexia
     Route: 042
  4. RIFAMPIN [Suspect]
     Active Substance: RIFAMPIN
     Indication: Tuberculosis
     Dosage: DOSE DESCRIPTION : 600 MG, QD?DAILY DOSE : 600 MILLIGRAM
  5. FLUCONAZOLE [Concomitant]
     Active Substance: FLUCONAZOLE
     Indication: Neutropenia
     Dosage: DOSE DESCRIPTION : 200 MG, QD?DAILY DOSE : 200 MILLIGRAM
     Route: 048

REACTIONS (3)
  - Therapy non-responder [Unknown]
  - Drug interaction [Unknown]
  - Skin lesion [Recovered/Resolved]
